FAERS Safety Report 11012584 (Version 1)
Quarter: 2015Q2

REPORT INFORMATION
  Report Type: Spontaneous
  Country: US (occurrence: None)
  Receive Date: 20150410
  Receipt Date: 20150410
  Transmission Date: 20150821
  Serious: Yes (Disabling)
  Sender: FDA-Public Use
  Company Number: None

PATIENT
  Age: 86 Year
  Sex: Female
  Weight: 48.54 kg

DRUGS (2)
  1. DOXYCYCLINE HYCLATE. [Suspect]
     Active Substance: DOXYCYCLINE HYCLATE
     Indication: HORDEOLUM
     Dosage: 1 50 MG CAP/DAY ONCE DAILY TAKEN BY MOUTH
     Route: 048
  2. DOXYCYCLINE HYCLATE. [Suspect]
     Active Substance: DOXYCYCLINE HYCLATE
     Indication: EYE INFECTION
     Dosage: 1 50 MG CAP/DAY ONCE DAILY TAKEN BY MOUTH
     Route: 048

REACTIONS (4)
  - Eating disorder [None]
  - Oral pain [None]
  - Oral mucosal blistering [None]
  - Oral candidiasis [None]

NARRATIVE: CASE EVENT DATE: 20150320
